FAERS Safety Report 12325582 (Version 2)
Quarter: 2016Q4

REPORT INFORMATION
  Report Type: Spontaneous
  Country: GB (occurrence: GB)
  Receive Date: 20160503
  Receipt Date: 20161014
  Transmission Date: 20170207
  Serious: Yes (Other)
  Sender: FDA-Public Use
  Company Number: GB-ALLERGAN-1655501US

PATIENT
  Age: 45 Year
  Sex: Female

DRUGS (3)
  1. ESMYA [Suspect]
     Active Substance: ULIPRISTAL ACETATE
     Indication: UTERINE LEIOMYOMA
     Dosage: 5 MG, QD
     Route: 048
     Dates: start: 20160123, end: 20160329
  2. ESMYA [Suspect]
     Active Substance: ULIPRISTAL ACETATE
     Indication: MENORRHAGIA
  3. FERROUS SULFATE. [Concomitant]
     Active Substance: FERROUS SULFATE
     Indication: PRODUCT USED FOR UNKNOWN INDICATION

REACTIONS (1)
  - Deep vein thrombosis [Recovered/Resolved]

NARRATIVE: CASE EVENT DATE: 20160329
